FAERS Safety Report 20112371 (Version 2)
Quarter: 2022Q2

REPORT INFORMATION
  Report Type: Report from Study
  Country: BR (occurrence: BR)
  Receive Date: 20211125
  Receipt Date: 20220519
  Transmission Date: 20220721
  Serious: Yes (Other)
  Sender: FDA-Public Use
  Company Number: BR-JNJFOC-20211147695

PATIENT
  Age: 41 Year
  Sex: Male
  Weight: 62 kg

DRUGS (1)
  1. REMICADE [Suspect]
     Active Substance: INFLIXIMAB
     Indication: Crohn^s disease
     Dosage: REMICADE 100 MG VIAL
     Route: 042

REACTIONS (1)
  - Gastrointestinal carcinoma [Unknown]

NARRATIVE: CASE EVENT DATE: 20210501
